FAERS Safety Report 9435460 (Version 1)
Quarter: 2013Q3

REPORT INFORMATION
  Report Type: Spontaneous
  Country: US (occurrence: US)
  Receive Date: 20130801
  Receipt Date: 20130801
  Transmission Date: 20140515
  Serious: Yes (Other)
  Sender: FDA-Public Use
  Company Number: US-GLAXOSMITHKLINE-B0912370A

PATIENT
  Age: 59 Year
  Sex: Male

DRUGS (8)
  1. MELPHALAN [Suspect]
     Indication: PLASMA CELL MYELOMA
     Route: 065
  2. VINCRISTINE [Suspect]
     Indication: PLASMA CELL MYELOMA
  3. DOXORUBICIN [Suspect]
     Indication: PLASMA CELL MYELOMA
  4. DEXAMETHASONE [Suspect]
     Indication: PLASMA CELL MYELOMA
  5. CYCLOPHOSPHAMIDE [Suspect]
     Indication: PLASMA CELL MYELOMA
  6. THALIDOMIDE [Suspect]
     Indication: PLASMA CELL MYELOMA
  7. REVLIMID [Suspect]
     Indication: PLASMA CELL MYELOMA
  8. BENDAMUSTINE [Suspect]
     Indication: PLASMA CELL MYELOMA

REACTIONS (1)
  - Refractory cytopenia with unilineage dysplasia [Unknown]
